FAERS Safety Report 19467586 (Version 1)
Quarter: 2021Q2

REPORT INFORMATION
  Report Type: Spontaneous
  Country: US (occurrence: US)
  Receive Date: 20210625
  Receipt Date: 20210625
  Transmission Date: 20210717
  Serious: Yes (Hospitalization)
  Sender: FDA-Public Use
  Company Number: None

PATIENT
  Age: 59 Year
  Sex: Male

DRUGS (19)
  1. TADALAFIL. [Concomitant]
     Active Substance: TADALAFIL
  2. ALLOPURINOL. [Concomitant]
     Active Substance: ALLOPURINOL
  3. GABAPENTIN. [Concomitant]
     Active Substance: GABAPENTIN
  4. APIXABAN [Concomitant]
     Active Substance: APIXABAN
  5. SENNOSIDES. [Concomitant]
     Active Substance: SENNOSIDES
  6. TORSEMIDE. [Concomitant]
     Active Substance: TORSEMIDE
  7. PREDNISONE. [Concomitant]
     Active Substance: PREDNISONE
  8. FERROUS SULFATE. [Concomitant]
     Active Substance: FERROUS SULFATE
  9. VITAMIN B1 [Concomitant]
     Active Substance: THIAMINE HYDROCHLORIDE
  10. SPIRONOLACTONE. [Concomitant]
     Active Substance: SPIRONOLACTONE
  11. POTASSIUM CHLORIDE. [Concomitant]
     Active Substance: POTASSIUM CHLORIDE
  12. NICORETTE [Concomitant]
     Active Substance: NICOTINE
  13. PANTOPRAZOLE [Concomitant]
     Active Substance: PANTOPRAZOLE
  14. AMIODARONE [Concomitant]
     Active Substance: AMIODARONE
  15. AMBRISENTAN 5MG TALBETS 30/BO: 5MG [Suspect]
     Active Substance: AMBRISENTAN
     Indication: PULMONARY HYPERTENSION
     Route: 048
     Dates: start: 20210430, end: 20210531
  16. ALVESCO HFA [Concomitant]
  17. ATORVASTATIN [Concomitant]
     Active Substance: ATORVASTATIN
  18. NICODERM CQ [Concomitant]
     Active Substance: NICOTINE
  19. ALBUTEROL HFA [Concomitant]
     Active Substance: ALBUTEROL SULFATE

REACTIONS (4)
  - Oedema [None]
  - Dyspnoea [None]
  - Iron deficiency anaemia [None]
  - Dizziness [None]

NARRATIVE: CASE EVENT DATE: 20210528
